FAERS Safety Report 9208837 (Version 1)
Quarter: 2013Q2

REPORT INFORMATION
  Report Type: Spontaneous
  Country: US (occurrence: US)
  Receive Date: 20130404
  Receipt Date: 20130404
  Transmission Date: 20140414
  Serious: Yes (Hospitalization)
  Sender: FDA-Public Use
  Company Number: US-PFIZER INC-2013103186

PATIENT
  Age: 60 Year
  Sex: Male
  Weight: 111 kg

DRUGS (2)
  1. TIKOSYN [Suspect]
     Indication: ATRIAL FIBRILLATION
     Dosage: UNK
  2. METOPROLOL [Concomitant]
     Indication: CARDIAC DISORDER
     Dosage: UNK

REACTIONS (1)
  - Atrial fibrillation [Recovering/Resolving]
